FAERS Safety Report 5080012-8 (Version None)
Quarter: 2006Q3

REPORT INFORMATION
  Report Type: 
  Country: None (occurrence: None)
  Receive Date: 20060810
  Receipt Date: 20060803
  Transmission Date: 20061208
  Serious: Yes (Other)
  Sender: FDA-Public Use
  Company Number: 2006095371

PATIENT
  Age: 83 Year
  Sex: Male
  Weight: 81.6475 kg

DRUGS (8)
  1. LIPITOR [Suspect]
     Indication: CARDIAC DISORDER
     Dosage: 10 MG (10 MG, 1 IN 1 D)
  2. ARICEPT [Concomitant]
  3. TOPROL-XL [Concomitant]
  4. CALCIUM GLUCONATE [Concomitant]
  5. LINSEED OIL [Concomitant]
  6. PYRIDOXINE HYDROCHLORIDE INJ [Concomitant]
  7. CYANOCOBALAMIN [Concomitant]
  8. DRUG, UNSPECIFIED [Concomitant]

REACTIONS (2)
  - CORONARY ARTERY OCCLUSION [None]
  - DEMENTIA ALZHEIMER'S TYPE [None]
